FAERS Safety Report 17070172 (Version 3)
Quarter: 2020Q1

REPORT INFORMATION
  Report Type: Spontaneous
  Country: SE (occurrence: SE)
  Receive Date: 20191125
  Receipt Date: 20200121
  Transmission Date: 20200409
  Serious: Yes (Death, Hospitalization, Other)
  Sender: FDA-Public Use
  Company Number: SE-ABBVIE-19K-150-3012496-00

PATIENT
  Age: 60 Year
  Sex: Male

DRUGS (7)
  1. VENCLYXTO [Suspect]
     Active Substance: VENETOCLAX
     Indication: CHRONIC LYMPHOCYTIC LEUKAEMIA
     Route: 048
     Dates: start: 20191115, end: 20191115
  2. ALLOPURINOL. [Concomitant]
     Active Substance: ALLOPURINOL
     Indication: PRODUCT USED FOR UNKNOWN INDICATION
     Dosage: 4-5 DAYS PRIOR TO VENETOCLAX
  3. LEVAXIN [Concomitant]
     Active Substance: LEVOTHYROXINE SODIUM
     Indication: PRODUCT USED FOR UNKNOWN INDICATION
     Route: 065
  4. VENCLYXTO [Suspect]
     Active Substance: VENETOCLAX
     Indication: NEOPLASM
     Dosage: STANDARD DOSE
     Route: 048
     Dates: start: 20191114, end: 20191114
  5. VENCLYXTO [Suspect]
     Active Substance: VENETOCLAX
     Route: 048
     Dates: start: 20191116, end: 20191116
  6. ALLOPURINOL. [Concomitant]
     Active Substance: ALLOPURINOL
     Indication: BLOOD URIC ACID INCREASED
  7. ALLOPURINOL. [Concomitant]
     Active Substance: ALLOPURINOL
     Indication: RENAL DISORDER PROPHYLAXIS

REACTIONS (11)
  - Tumour lysis syndrome [Fatal]
  - Sepsis [Unknown]
  - Vomiting [Not Recovered/Not Resolved]
  - Pyrexia [Unknown]
  - Acute kidney injury [Fatal]
  - General physical condition abnormal [Unknown]
  - Abdominal pain upper [Not Recovered/Not Resolved]
  - Arrhythmia [Unknown]
  - Cardiac arrest [Fatal]
  - Neoplasm [Fatal]
  - White blood cell count increased [Not Recovered/Not Resolved]

NARRATIVE: CASE EVENT DATE: 201911
